FAERS Safety Report 6210689-2 (Version None)
Quarter: 2009Q2

REPORT INFORMATION
  Report Type: 
  Country: None (occurrence: None)
  Receive Date: 20090527
  Receipt Date: 20090515
  Transmission Date: 20091009
  Serious: Yes (Other)
  Sender: FDA-Public Use
  Company Number: DSU-2009-01095

PATIENT
  Age: 65 Year
  Sex: Female

DRUGS (5)
  1. OLMESARTAN MEDOXOMIL [Suspect]
     Indication: HYPERTENSION
     Dosage: 20 MG (20 MG, QD), PER ORAL
     Route: 048
     Dates: start: 20090101
  2. BYETTA (EXENATIDE) (10 MILLIGRAM, INJECTION) [Concomitant]
  3. GLUCOPHAGE [Concomitant]
  4. APRONAX (NAPROXEN) [Concomitant]
  5. IBUPROFEN [Concomitant]

REACTIONS (4)
  - FALL [None]
  - FEMUR FRACTURE [None]
  - FIBULA FRACTURE [None]
  - PATELLA FRACTURE [None]
